FAERS Safety Report 7440023-1 (Version None)
Quarter: 2011Q2

REPORT INFORMATION
  Report Type: 
  Country: None (occurrence: None)
  Receive Date: 20110427
  Receipt Date: 20110418
  Transmission Date: 20111010
  Serious: Yes (Hospitalization)
  Sender: FDA-Public Use
  Company Number: US-ASTRAZENECA-2011SE22049

PATIENT
  Age: 79 Year
  Sex: Male

DRUGS (1)
  1. SYMBICORT [Suspect]
     Dosage: 80/4.5 MCG ONE PUFF  BID
     Route: 055
     Dates: start: 20100101

REACTIONS (1)
  - HIP SURGERY [None]
